FAERS Safety Report 13868848 (Version 2)
Quarter: 2017Q3

REPORT INFORMATION
  Report Type: Spontaneous
  Country: ID (occurrence: ID)
  Receive Date: 20170815
  Receipt Date: 20170817
  Transmission Date: 20171127
  Serious: Yes (Death, Life-Threatening, Hospitalization)
  Sender: FDA-Public Use
  Company Number: ID-ASTRAZENECA-2017SE82218

PATIENT
  Age: 34 Year
  Sex: Female

DRUGS (2)
  1. JAMU [Concomitant]
  2. IRESSA [Suspect]
     Active Substance: GEFITINIB
     Indication: LUNG ADENOCARCINOMA STAGE IV
     Route: 048
     Dates: start: 20170806, end: 20170807

REACTIONS (3)
  - Haematemesis [Fatal]
  - Haematochezia [Fatal]
  - Condition aggravated [Unknown]

NARRATIVE: CASE EVENT DATE: 20170806
